FAERS Safety Report 14381171 (Version 1)
Quarter: 2018Q1

REPORT INFORMATION
  Report Type: Spontaneous
  Country: US (occurrence: US)
  Receive Date: 20180112
  Receipt Date: 20180112
  Transmission Date: 20180509
  Serious: Yes (Other)
  Sender: FDA-Public Use
  Company Number: US-SUPERNUS PHARMACEUTICALS, INC.-2017SUP00358

PATIENT
  Sex: Male

DRUGS (4)
  1. TROKENDI XR [Suspect]
     Active Substance: TOPIRAMATE
     Dosage: 50 MG, UNK
  2. TROKENDI XR [Suspect]
     Active Substance: TOPIRAMATE
     Indication: MIGRAINE PROPHYLAXIS
     Dosage: 25 MG, UNK
  3. TROKENDI XR [Suspect]
     Active Substance: TOPIRAMATE
     Dosage: 50 MG, UNK
     Dates: start: 201712
  4. TROKENDI XR [Suspect]
     Active Substance: TOPIRAMATE
     Dosage: 100 MG, UNK

REACTIONS (3)
  - Chronic kidney disease [Not Recovered/Not Resolved]
  - Blood creatinine increased [Not Recovered/Not Resolved]
  - Erectile dysfunction [Unknown]

NARRATIVE: CASE EVENT DATE: 2017
